FAERS Safety Report 5183578-2 (Version None)
Quarter: 2006Q4

REPORT INFORMATION
  Report Type: 
  Country: None (occurrence: None)
  Receive Date: 20061220
  Receipt Date: 20060123
  Transmission Date: 20070319
  Serious: No
  Sender: FDA-Public Use
  Company Number: US-GLAXOSMITHKLINE-A0590448A

PATIENT
  Age: 60 Year
  Sex: Female

DRUGS (3)
  1. NICODERM CQ [Suspect]
     Dates: start: 20051214, end: 20060114
  2. NICODERM CQ [Suspect]
     Dates: start: 20060101, end: 20060101
  3. NICORETTE [Suspect]

REACTIONS (6)
  - APPLICATION SITE PRURITUS [None]
  - DYSGEUSIA [None]
  - HUNGER [None]
  - NAUSEA [None]
  - SENSORY DISTURBANCE [None]
  - STOMACH DISCOMFORT [None]
